FAERS Safety Report 7248316-8 (Version None)
Quarter: 2011Q1

REPORT INFORMATION
  Report Type: 
  Country: None (occurrence: None)
  Receive Date: 20110127
  Receipt Date: 20110120
  Transmission Date: 20110831
  Serious: Yes (Other)
  Sender: FDA-Public Use
  Company Number: US-PFIZER INC-HQWYE303021JUL04

PATIENT
  Sex: Female

DRUGS (2)
  1. PROVERA [Suspect]
     Indication: HORMONE REPLACEMENT THERAPY
     Dosage: UNK
     Route: 048
  2. PREMPRO [Suspect]
     Indication: HORMONE REPLACEMENT THERAPY
     Dosage: UNK
     Route: 048

REACTIONS (6)
  - DIABETES MELLITUS [None]
  - BLADDER DISORDER [None]
  - RENAL IMPAIRMENT [None]
  - PERIPHERAL ARTERIAL OCCLUSIVE DISEASE [None]
  - LIVER DISORDER [None]
  - MYOCARDIAL INFARCTION [None]
